FAERS Safety Report 7639278-X (Version None)
Quarter: 2011Q3

REPORT INFORMATION
  Report Type: 
  Country: None (occurrence: None)
  Receive Date: 20110721
  Receipt Date: 20110714
  Transmission Date: 20111222
  Serious: Yes (Other)
  Sender: FDA-Public Use
  Company Number: TRP_07832_2011

PATIENT
  Age: 36 Year
  Sex: Male

DRUGS (2)
  1. RIBAVIRIN [Suspect]
     Indication: HEPATITIS C
     Dosage: DF
     Dates: start: 20040101
  2. INTERFERON ALFA [Suspect]
     Indication: HEPATITIS C
     Dosage: DF
     Dates: start: 20040101

REACTIONS (3)
  - CATARACT [None]
  - RETINAL DETACHMENT [None]
  - SUDDEN VISUAL LOSS [None]
